FAERS Safety Report 19913661 (Version 1)
Quarter: 2021Q4

REPORT INFORMATION
  Report Type: Spontaneous
  Country: KR (occurrence: KR)
  Receive Date: 20211004
  Receipt Date: 20211004
  Transmission Date: 20220303
  Serious: Yes (Hospitalization, Other)
  Sender: FDA-Public Use
  Company Number: KR-AMGEN-KORSP2021149332

PATIENT

DRUGS (2)
  1. XGEVA [Suspect]
     Active Substance: DENOSUMAB
     Indication: Metastases to bone
     Dosage: 120 MILLIGRAM, Q4WK
     Route: 058
     Dates: start: 201802
  2. XGEVA [Suspect]
     Active Substance: DENOSUMAB
     Indication: Breast cancer metastatic

REACTIONS (14)
  - Myalgia [Unknown]
  - Skin erosion [Unknown]
  - Gastrointestinal haemorrhage [Unknown]
  - Paraesthesia [Unknown]
  - Oedema [Unknown]
  - Thrombocytopenia [Unknown]
  - Headache [Unknown]
  - Nausea [Unknown]
  - Osteonecrosis of jaw [Unknown]
  - Breast cancer metastatic [Unknown]
  - Spinal cord compression [Unknown]
  - Pathological fracture [Unknown]
  - Compression fracture [Unknown]
  - Bone pain [Unknown]
